FAERS Safety Report 6569037-0 (Version None)
Quarter: 2010Q1

REPORT INFORMATION
  Report Type: 
  Country: None (occurrence: None)
  Receive Date: 20100203
  Receipt Date: 20100129
  Transmission Date: 20100710
  Serious: Yes (Life-Threatening, Hospitalization)
  Sender: FDA-Public Use
  Company Number: PHHY2010FR05104

PATIENT
  Sex: Male
  Weight: 75 kg

DRUGS (3)
  1. AFINITOR [Suspect]
     Indication: RENAL CANCER
     Dosage: 10 MG DAILY
     Dates: start: 20090715, end: 20090908
  2. AFINITOR [Suspect]
     Dosage: 5 MG DAILY
  3. ZOMETA [Suspect]
     Indication: METASTASES TO BONE
     Dosage: 3 MG, UNK
     Dates: end: 20090901

REACTIONS (5)
  - ASTHENIA [None]
  - CONFUSIONAL STATE [None]
  - DEHYDRATION [None]
  - RENAL FAILURE ACUTE [None]
  - URINE OUTPUT DECREASED [None]
